FAERS Safety Report 10253715 (Version 2)
Quarter: 2014Q2

REPORT INFORMATION
  Report Type: Report from Study
  Country: JP (occurrence: JP)
  Receive Date: 20140623
  Receipt Date: 20140623
  Transmission Date: 20141212
  Serious: Yes (Hospitalization)
  Sender: FDA-Public Use
  Company Number: JP-B.I. PHARMACEUTICALS,INC./RIDGEFIELD-2014-BI-25818NB

PATIENT
  Age: 71 Year
  Sex: Male
  Weight: 57 kg

DRUGS (7)
  1. PRAZAXA [Suspect]
     Indication: CEREBROVASCULAR ACCIDENT PROPHYLAXIS
     Dosage: 220 MG
     Route: 048
     Dates: start: 20120504
  2. PARIET [Concomitant]
     Dosage: 10 MG
     Route: 048
  3. MAINTATE [Concomitant]
     Dosage: 2.5 MG
     Route: 048
  4. VASOLAN [Concomitant]
     Indication: ATRIAL FIBRILLATION
     Dosage: 80 MG
     Route: 048
     Dates: end: 20140420
  5. GASCON [Concomitant]
     Indication: PROPHYLAXIS
     Dosage: 120 MG
     Route: 048
     Dates: end: 20131021
  6. COVERSYL [Concomitant]
     Indication: PROPHYLAXIS
     Dosage: 2 MG
     Route: 048
     Dates: end: 20130603
  7. SELARA [Concomitant]
     Dosage: 25 MG
     Route: 048
     Dates: start: 20120813

REACTIONS (1)
  - Cholecystitis acute [Recovered/Resolved]
